FAERS Safety Report 16725139 (Version 1)
Quarter: 2019Q3

REPORT INFORMATION
  Report Type: Spontaneous
  Country: US (occurrence: US)
  Receive Date: 20190821
  Receipt Date: 20190821
  Transmission Date: 20191005
  Serious: Yes (Other)
  Sender: FDA-Public Use
  Company Number: US-HQ SPECIALTY-US-2019INT000228

PATIENT

DRUGS (1)
  1. TAXOL [Suspect]
     Active Substance: PACLITAXEL
     Indication: PRODUCT USED FOR UNKNOWN INDICATION
     Dosage: UNK
     Route: 065

REACTIONS (8)
  - Neuropathy peripheral [Unknown]
  - Breast cancer metastatic [Unknown]
  - Urinary tract infection [Unknown]
  - Diarrhoea [Unknown]
  - Neutropenia [Unknown]
  - Mucous stools [Unknown]
  - Bone marrow failure [Unknown]
  - Fatigue [Unknown]
